FAERS Safety Report 19126737 (Version 1)
Quarter: 2021Q2

REPORT INFORMATION
  Report Type: Spontaneous
  Country: US (occurrence: US)
  Receive Date: 20210412
  Receipt Date: 20210412
  Transmission Date: 20210717
  Serious: No
  Sender: FDA-Public Use
  Company Number: US-PERRIGO-21US003454

PATIENT
  Age: 51 Year
  Sex: Female
  Weight: 68.03 kg

DRUGS (1)
  1. CLOBETASOL PROPIONATE. [Suspect]
     Active Substance: CLOBETASOL PROPIONATE
     Indication: PSORIASIS
     Dosage: SMALL AMOUNT, NIGHTLY
     Route: 061
     Dates: start: 20210217, end: 20210304

REACTIONS (2)
  - Inappropriate schedule of product administration [Recovered/Resolved]
  - Application site pain [Recovered/Resolved]

NARRATIVE: CASE EVENT DATE: 20210217
